FAERS Safety Report 7743010-9 (Version None)
Quarter: 2011Q3

REPORT INFORMATION
  Report Type: 
  Country: None (occurrence: None)
  Receive Date: 20110912
  Receipt Date: 20110831
  Transmission Date: 20111222
  Serious: Yes (Hospitalization)
  Sender: FDA-Public Use
  Company Number: DE-ROCHE-787122

PATIENT
  Sex: Male
  Weight: 63.8 kg

DRUGS (9)
  1. TAMSULOSIN HCL [Concomitant]
     Dosage: TDD: 0.4 TAKEN AT BASELINE.
  2. NOVALGIN [Concomitant]
     Dosage: NOVALGIN DROPS TDD: 120 DROPS
     Dates: start: 20110425
  3. BEVACIZUMAB [Suspect]
     Indication: NON-SMALL CELL LUNG CANCER
     Dosage: ON DAY 1 AND THEN EVERY 3 WEEKS., LAST DOSE: 08 JUN 2011
     Route: 042
     Dates: start: 20110427, end: 20110629
  4. PEMETREXED [Suspect]
     Route: 042
     Dates: start: 20110709
  5. ASPIRIN [Concomitant]
     Dosage: TDD: 100 COMMENCED FROM BASELINE.
  6. BEVACIZUMAB [Suspect]
     Route: 042
     Dates: start: 20110719
  7. SIMVASTATIN [Concomitant]
     Dosage: TDD: 40 COMMENCED AT BASELINE.
  8. PEMETREXED [Suspect]
     Indication: NON-SMALL CELL LUNG CANCER
     Dosage: ON DAY 1 AND THEN EVERY 3 WEEKS., LAST DOSE: 08 JUN 2011, FORM: INFUSION
     Route: 042
     Dates: start: 20110427, end: 20110629
  9. FOLSAN [Concomitant]
     Dosage: TDD: 0.4
     Dates: start: 20110415

REACTIONS (2)
  - PNEUMONIA [None]
  - PNEUMOTHORAX [None]
